FAERS Safety Report 5565798-8 (Version None)
Quarter: 2007Q4

REPORT INFORMATION
  Report Type: 
  Country: None (occurrence: None)
  Receive Date: 20071218
  Receipt Date: 20071210
  Transmission Date: 20080405
  Serious: Yes (Other)
  Sender: FDA-Public Use
  Company Number: CA-GENENTECH-252562

PATIENT
  Sex: Female
  Weight: 91 kg

DRUGS (1)
  1. OMALIZUMAB [Suspect]
     Indication: ASTHMA
     Dosage: 225 MG, UNK
     Route: 058
     Dates: start: 20070621, end: 20071129

REACTIONS (3)
  - INSOMNIA [None]
  - THERMAL BURN [None]
  - UNEVALUABLE EVENT [None]
